FAERS Safety Report 24754875 (Version 2)
Quarter: 2024Q4

REPORT INFORMATION
  Report Type: Spontaneous
  Country: ES (occurrence: ES)
  Receive Date: 20241219
  Receipt Date: 20241224
  Transmission Date: 20250115
  Serious: Yes (Other)
  Sender: PFIZER
  Company Number: ES-PFIZER INC-202400326547

PATIENT
  Age: 68 Year
  Sex: Female

DRUGS (4)
  1. VORICONAZOLE [Suspect]
     Active Substance: VORICONAZOLE
     Indication: Intervertebral discitis
     Dosage: 4 MG/KG, 2X/DAY, EVERY 12 HOURS
     Route: 042
  2. VORICONAZOLE [Suspect]
     Active Substance: VORICONAZOLE
     Indication: Intervertebral discitis
     Dosage: 200 MG, 2X/DAY
     Route: 048
  3. MEROPENEM [Concomitant]
     Active Substance: MEROPENEM
     Indication: Pancytopenia
     Dosage: UNK
  4. VANCOMYCIN [Concomitant]
     Active Substance: VANCOMYCIN
     Indication: Pancytopenia
     Dosage: UNK

REACTIONS (4)
  - Drug ineffective [Unknown]
  - Photosensitivity reaction [Unknown]
  - Hepatic function abnormal [Unknown]
  - Hepatotoxicity [Unknown]
